FAERS Safety Report 19980421 (Version 5)
Quarter: 2022Q1

REPORT INFORMATION
  Report Type: Report from Study
  Country: US (occurrence: US)
  Receive Date: 20211021
  Receipt Date: 20220215
  Transmission Date: 20220423
  Serious: Yes (Hospitalization, Other)
  Sender: FDA-Public Use
  Company Number: US-SANOFI-00815080

PATIENT
  Age: 81 Year
  Sex: Male

DRUGS (2)
  1. DUPILUMAB [Suspect]
     Active Substance: DUPILUMAB
     Indication: Dermatitis atopic
     Dosage: 600 MG, 1X
     Route: 058
     Dates: start: 20210909, end: 20210909
  2. DUPILUMAB [Suspect]
     Active Substance: DUPILUMAB
     Dosage: 300 MG, QOW
     Route: 058
     Dates: start: 20210927

REACTIONS (11)
  - Chronic kidney disease [Not Recovered/Not Resolved]
  - Renal impairment [Not Recovered/Not Resolved]
  - Hospitalisation [Unknown]
  - Surgical vascular shunt [Not Recovered/Not Resolved]
  - Dialysis [Not Recovered/Not Resolved]
  - Inappropriate schedule of product administration [Unknown]
  - Fall [Not Recovered/Not Resolved]
  - Eczema [Not Recovered/Not Resolved]
  - Condition aggravated [Not Recovered/Not Resolved]
  - Tooth loss [Not Recovered/Not Resolved]
  - Limb operation [Unknown]

NARRATIVE: CASE EVENT DATE: 20210922
